FAERS Safety Report 6196789-4 (Version None)
Quarter: 2009Q2

REPORT INFORMATION
  Report Type: 
  Country: None (occurrence: None)
  Receive Date: 20090520
  Receipt Date: 20090511
  Transmission Date: 20091009
  Serious: Yes (Hospitalization, Other)
  Sender: FDA-Public Use
  Company Number: PHHY2009BR16508

PATIENT
  Age: 84 Year
  Sex: Male
  Weight: 76 kg

DRUGS (7)
  1. EXELON [Suspect]
     Dosage: 1.5 MG, UNK
     Route: 048
     Dates: start: 20070501
  2. EXELON [Suspect]
     Dosage: 1.5 MG, UNK
     Route: 048
  3. EXELON [Suspect]
     Dosage: 3 MG, BID
     Route: 048
  4. SEROQUEL [Concomitant]
     Indication: POOR QUALITY SLEEP
     Dosage: 0.5 DF, QHS
     Route: 048
  5. PYGEUM AFRICANUM [Concomitant]
     Indication: PROSTATOMEGALY
     Dosage: 1 TABLET DAILY
     Route: 048
  6. AMLODIPINE BESYLATE [Concomitant]
     Indication: BLOOD PRESSURE INCREASED
     Dosage: 5 MG DAILY
     Route: 048
  7. ALOES [Concomitant]
     Dosage: 10 MG
     Route: 048

REACTIONS (19)
  - AGITATION [None]
  - BRAIN COMPRESSION [None]
  - CEREBRAL HAEMATOMA [None]
  - CHOKING [None]
  - CONDITION AGGRAVATED [None]
  - DISORIENTATION [None]
  - DIZZINESS [None]
  - DYSENTERY [None]
  - ENDOSCOPY [None]
  - ENDOTRACHEAL INTUBATION [None]
  - FAECAL INCONTINENCE [None]
  - FALL [None]
  - GASTRIC DISORDER [None]
  - GASTRITIS HAEMORRHAGIC [None]
  - HEMIPARESIS [None]
  - NEUROSURGERY [None]
  - RESPIRATORY ARREST [None]
  - URINARY TRACT INFECTION [None]
  - VOMITING [None]
